FAERS Safety Report 8223835-6 (Version None)
Quarter: 2012Q1

REPORT INFORMATION
  Report Type: 
  Country: None (occurrence: None)
  Receive Date: 20120321
  Receipt Date: 20120312
  Transmission Date: 20120608
  Serious: Yes (Disabling, Other)
  Sender: FDA-Public Use
  Company Number: AU-JNJFOC-20110207269

PATIENT
  Sex: Female

DRUGS (14)
  1. REMICADE [Suspect]
     Route: 042
     Dates: start: 20111005
  2. REMICADE [Suspect]
     Dosage: POST DELIVERY OF HEALTHY MALE INFANT
     Route: 042
     Dates: start: 20110810
  3. PREDNEFRIN FORTE [Concomitant]
     Route: 047
  4. REMICADE [Suspect]
     Indication: ANKYLOSING SPONDYLITIS
     Route: 042
  5. REMICADE [Suspect]
     Dosage: 34 WEEKS PREGNANT
     Route: 042
     Dates: start: 20110601
  6. REMICADE [Suspect]
     Route: 042
     Dates: start: 20111005
  7. REMICADE [Suspect]
     Dosage: POST DELIVERY OF HEALTHY MALE INFANT
     Route: 042
     Dates: start: 20110810
  8. REMICADE [Suspect]
     Dosage: 34 WEEKS PREGNANT
     Route: 042
     Dates: start: 20110601
  9. REMICADE [Suspect]
     Dosage: 34 WEEKS PREGNANT
     Route: 042
     Dates: start: 20110601
  10. REMICADE [Suspect]
     Route: 042
     Dates: start: 20111005
  11. REMICADE [Suspect]
     Dosage: POST DELIVERY OF HEALTHY MALE INFANT
     Route: 042
     Dates: start: 20110810
  12. HOMATROPINE [Concomitant]
     Route: 047
  13. REMICADE [Suspect]
     Indication: JUVENILE ARTHRITIS
     Route: 042
  14. REMICADE [Suspect]
     Indication: UVEITIS
     Route: 042

REACTIONS (7)
  - UVEITIS [None]
  - ARTHRALGIA [None]
  - MATERNAL EXPOSURE DURING PREGNANCY [None]
  - CAESAREAN SECTION [None]
  - DRUG INEFFECTIVE [None]
  - URINARY TRACT INFECTION [None]
  - HEAT STROKE [None]
